FAERS Safety Report 9826121 (Version 2)
Quarter: 2014Q4

REPORT INFORMATION
  Report Type: Spontaneous
  Country: US (occurrence: None)
  Receive Date: 20131028
  Receipt Date: 20141015
  Transmission Date: 20150529
  Serious: Yes (Other)
  Sender: FDA-Public Use
  Company Number: 2013US002314

PATIENT
  Age: 65 Year
  Sex: Male
  Weight: 88 kg

DRUGS (1)
  1. ICLUSIG [Suspect]
     Active Substance: PONATINIB
     Indication: CHRONIC MYELOID LEUKAEMIA
     Dosage: 45 MG, QD, ORAL
     Route: 048
     Dates: start: 20130802

REACTIONS (4)
  - Blood glucose increased [None]
  - Pain [None]
  - Fatigue [None]
  - Somnolence [None]

NARRATIVE: CASE EVENT DATE: 20130802
